FAERS Safety Report 16162274 (Version 1)
Quarter: 2019Q2

REPORT INFORMATION
  Report Type: Spontaneous
  Country: SE (occurrence: SE)
  Receive Date: 20190405
  Receipt Date: 20190405
  Transmission Date: 20190711
  Serious: Yes (Other)
  Sender: FDA-Public Use
  Company Number: SE-MICRO LABS LIMITED-ML2019-00843

PATIENT
  Age: 82 Year
  Sex: Female

DRUGS (5)
  1. LEVOFLOXACIN. [Suspect]
     Active Substance: LEVOFLOXACIN
     Indication: LUNG DISORDER
     Route: 048
  2. URAPIDIL [Concomitant]
     Active Substance: URAPIDIL
  3. ASPIRIN. [Concomitant]
     Active Substance: ASPIRIN
  4. NADOLOL. [Concomitant]
     Active Substance: NADOLOL
  5. HYDROCHLOROTHIAZIDE. [Concomitant]
     Active Substance: HYDROCHLOROTHIAZIDE

REACTIONS (3)
  - Myoclonus [Recovered/Resolved]
  - Encephalopathy [Recovered/Resolved]
  - Cheyne-Stokes respiration [Recovered/Resolved]
